FAERS Safety Report 24810480 (Version 1)
Quarter: 2025Q1

REPORT INFORMATION
  Report Type: Report from Study
  Country: US (occurrence: US)
  Receive Date: 20250106
  Receipt Date: 20250106
  Transmission Date: 20250409
  Serious: Yes (Death)
  Sender: TEVA
  Company Number: US-TEVA-VS-3283020

PATIENT

DRUGS (6)
  1. VALGANCICLOVIR [Suspect]
     Active Substance: VALGANCICLOVIR
     Indication: Post transplant lymphoproliferative disorder
     Dosage: MAINTENANCE THERAPY STARTED ON DAY 15
     Route: 065
  2. GANCICLOVIR [Suspect]
     Active Substance: GANCICLOVIR
     Indication: Post transplant lymphoproliferative disorder
     Dosage: 14?DAYS
     Route: 042
  3. ZIDOVUDINE [Suspect]
     Active Substance: ZIDOVUDINE
     Indication: Post transplant lymphoproliferative disorder
     Dosage: 14?DAYS
     Route: 042
  4. ZIDOVUDINE [Suspect]
     Active Substance: ZIDOVUDINE
     Indication: Post transplant lymphoproliferative disorder
     Dosage: MAINTENANCE THERAPY STARTED ON DAY 15
     Route: 042
  5. DEXAMETHASONE [Suspect]
     Active Substance: DEXAMETHASONE
     Indication: Post transplant lymphoproliferative disorder
     Dosage: 14?DAYS
     Route: 042
  6. RITUXIMAB [Suspect]
     Active Substance: RITUXIMAB
     Indication: Post transplant lymphoproliferative disorder
     Dosage: FOR 4?WEEKS
     Route: 065

REACTIONS (1)
  - Drug ineffective [Fatal]
